FAERS Safety Report 8315027-7 (Version None)
Quarter: 2012Q2

REPORT INFORMATION
  Report Type: 
  Country: None (occurrence: None)
  Receive Date: 20120426
  Receipt Date: 20120419
  Transmission Date: 20120825
  Serious: Yes (Hospitalization, Other)
  Sender: FDA-Public Use
  Company Number: US-ABBOTT-12P-163-0920037-00

PATIENT
  Sex: Female
  Weight: 65.83 kg

DRUGS (6)
  1. VITAMIN D [Concomitant]
     Indication: VITAMIN SUPPLEMENTATION
  2. HUMIRA [Suspect]
     Indication: CROHN'S DISEASE
     Route: 058
     Dates: end: 20120306
  3. CHOLESTYRAMINE [Concomitant]
     Indication: DIARRHOEA
  4. CALCIUM [Concomitant]
     Indication: MINERAL SUPPLEMENTATION
  5. POTASSIUM CHLORIDE [Concomitant]
     Indication: MINERAL SUPPLEMENTATION
  6. ASACOL [Concomitant]
     Indication: CROHN'S DISEASE
     Route: 048

REACTIONS (5)
  - AMNESIA [None]
  - TRANSAMINASES INCREASED [None]
  - FATIGUE [None]
  - LOSS OF CONSCIOUSNESS [None]
  - GRAND MAL CONVULSION [None]
